FAERS Safety Report 6577566-9 (Version None)
Quarter: 2010Q1

REPORT INFORMATION
  Report Type: 
  Country: None (occurrence: None)
  Receive Date: 20100211
  Receipt Date: 20091203
  Transmission Date: 20100710
  Serious: Yes (Other)
  Sender: FDA-Public Use
  Company Number: HU-NAPPMUNDI-DEU-2009-0005741

PATIENT
  Sex: Female

DRUGS (16)
  1. BLINDED NONE [Suspect]
     Indication: PAIN
     Dosage: 20 MG, SINGLE
     Route: 048
     Dates: start: 20091201, end: 20091201
  2. BLINDED OXY CR TAB [Suspect]
     Indication: PAIN
     Dosage: 20 MG, SINGLE
     Route: 048
     Dates: start: 20091201, end: 20091201
  3. BLINDED OXY CR TAB 10 MG [Suspect]
     Indication: PAIN
     Dosage: 20 MG, SINGLE
     Route: 048
     Dates: start: 20091201, end: 20091201
  4. BLINDED OXY CR TAB 20 MG [Suspect]
     Indication: PAIN
     Dosage: 20 MG, SINGLE
     Route: 048
     Dates: start: 20091201, end: 20091201
  5. BLINDED OXY CR TAB 40 MG [Suspect]
     Indication: PAIN
     Dosage: 20 MG, SINGLE
     Route: 048
     Dates: start: 20091201, end: 20091201
  6. BLINDED OXY CR TAB 5 MG [Suspect]
     Indication: PAIN
     Dosage: 20 MG, SINGLE
     Route: 048
     Dates: start: 20091201, end: 20091201
  7. BLINDED OXYCODONE HCL/NALOXONE HCL CR TAB [Suspect]
     Indication: PAIN
     Dosage: 20 MG, SINGLE
     Route: 048
     Dates: start: 20091201, end: 20091201
  8. BLINDED OXYCODONE HCL/NALOXONE HCL CR TAB 10/5MG [Suspect]
     Indication: PAIN
     Dosage: 20 MG, SINGLE
     Route: 048
     Dates: start: 20091201, end: 20091201
  9. BLINDED OXYCODONE HCL/NALOXONE HCL CR TAB20/10MG [Suspect]
     Indication: PAIN
     Dosage: 20 MG, SINGLE
     Route: 048
     Dates: start: 20091201, end: 20091201
  10. BLINDED OXYCODONE HCL/NALOXONE HCL CRTAB 5/2.5MG [Suspect]
     Indication: PAIN
     Dosage: 20 MG, SINGLE
     Route: 048
     Dates: start: 20091201, end: 20091201
  11. CO-PRENESSA [Concomitant]
  12. BISOCARD                           /00802601/ [Concomitant]
  13. FURON                              /00032601/ [Concomitant]
  14. KALIUM-R [Concomitant]
  15. MILURIT [Concomitant]
  16. FRONTIN [Concomitant]
     Dosage: UNK

REACTIONS (4)
  - HYPERHIDROSIS [None]
  - PALPITATIONS [None]
  - TREMOR [None]
  - VERTIGO [None]
